FAERS Safety Report 5725528-3 (Version None)
Quarter: 2008Q2

REPORT INFORMATION
  Report Type: 
  Country: None (occurrence: None)
  Receive Date: 20080501
  Receipt Date: 20080422
  Transmission Date: 20081010
  Serious: Yes (Other)
  Sender: FDA-Public Use
  Company Number: US-JNJFOC-20080406724

PATIENT
  Sex: Female

DRUGS (4)
  1. DURAGESIC-100 [Suspect]
     Dosage: 1X 100UG/HR AND 1X 50 UG/HR PATCHES
     Route: 062
  2. DURAGESIC-100 [Suspect]
     Route: 062
  3. DURAGESIC-100 [Suspect]
     Indication: PAIN
     Route: 062
  4. NAPALAN [Suspect]
     Indication: DRUG USE FOR UNKNOWN INDICATION
     Route: 048

REACTIONS (14)
  - APPLICATION SITE PRURITUS [None]
  - APPLICATION SITE RASH [None]
  - ARTHRITIS [None]
  - BREAKTHROUGH PAIN [None]
  - FIBROMYALGIA [None]
  - HYPERHIDROSIS [None]
  - INTERVERTEBRAL DISC INJURY [None]
  - NAUSEA [None]
  - NERVE COMPRESSION [None]
  - NEUROPATHY PERIPHERAL [None]
  - PAIN [None]
  - PHARMACEUTICAL PRODUCT COMPLAINT [None]
  - SWELLING [None]
  - WEIGHT INCREASED [None]
